FAERS Safety Report 9462352 (Version 3)
Quarter: 2014Q2

REPORT INFORMATION
  Report Type: Spontaneous
  Country: IT (occurrence: IT)
  Receive Date: 20130816
  Receipt Date: 20140401
  Transmission Date: 20141212
  Serious: Yes (Other)
  Sender: FDA-Public Use
  Company Number: IT-009507513-1308ITA006166

PATIENT
  Age: 78 Year
  Sex: Female

DRUGS (6)
  1. LORTAAN 50 MG COMPRESSE RIVESTITE CON FILM [Suspect]
     Indication: HYPERTENSION
     Dosage: DAILY DOSAGE AND FREQUENCY UNKNOWN
     Route: 048
     Dates: start: 20120101, end: 20130729
  2. HIZAAR 50MG + 12.5MG COMPRESSE RIVESTITE CON FILM [Interacting]
     Indication: HYPERTENSION
     Dosage: EVERY OTHER DAY
     Route: 048
     Dates: start: 20120101, end: 20130729
  3. TAIGALOR [Interacting]
     Indication: OSTEOARTHRITIS
     Dosage: UNK
     Route: 048
     Dates: start: 20120407, end: 20130729
  4. CARDIOASPIRIN [Concomitant]
     Route: 048
  5. ZOLOFT [Concomitant]
  6. SIVASTIN [Concomitant]

REACTIONS (4)
  - Blood pressure increased [Recovered/Resolved]
  - Drug interaction [Recovered/Resolved]
  - Hypertensive crisis [Recovered/Resolved]
  - Vertigo [Recovered/Resolved]
